FAERS Safety Report 9795092 (Version 2)
Quarter: 2014Q1

REPORT INFORMATION
  Report Type: Spontaneous
  Country: US (occurrence: US)
  Receive Date: 20140103
  Receipt Date: 20140124
  Transmission Date: 20141002
  Serious: No
  Sender: FDA-Public Use
  Company Number: US-009507513-1312USA011954

PATIENT
  Age: 40 Year
  Sex: Female

DRUGS (1)
  1. NASONEX [Suspect]
     Indication: HYPERSENSITIVITY
     Dosage: 50 MICROGRAM, BID
     Route: 045
     Dates: start: 201304, end: 201304

REACTIONS (3)
  - Nasal congestion [Unknown]
  - Depression [Unknown]
  - Drug ineffective [Unknown]
